FAERS Safety Report 6154148-4 (Version None)
Quarter: 2009Q2

REPORT INFORMATION
  Report Type: 
  Country: None (occurrence: None)
  Receive Date: 20090414
  Receipt Date: 20090406
  Transmission Date: 20091009
  Serious: Yes (Hospitalization, Other)
  Sender: FDA-Public Use
  Company Number: US-ROCHE-622909

PATIENT
  Sex: Female
  Weight: 79.4 kg

DRUGS (3)
  1. CAPECITABINE [Suspect]
     Indication: COLON CANCER
     Dosage: 7 DAYS ON, 7 DAYS OFF
     Route: 048
     Dates: start: 20080504, end: 20090304
  2. COUMADIN [Suspect]
     Dosage: FREQUENCY REPORTED AS: DAILY
     Route: 048
  3. LOVENOX [Concomitant]

REACTIONS (3)
  - DISEASE PROGRESSION [None]
  - NEUTROPENIA [None]
  - RECTAL HAEMORRHAGE [None]
